FAERS Safety Report 8154035-6 (Version None)
Quarter: 2012Q1

REPORT INFORMATION
  Report Type: 
  Country: None (occurrence: None)
  Receive Date: 20120221
  Receipt Date: 20120221
  Transmission Date: 20120608
  Serious: Yes (Other)
  Sender: FDA-Public Use
  Company Number: None

PATIENT
  Age: 26 Year
  Sex: Female
  Weight: 62.142 kg

DRUGS (1)
  1. CYMBALTA [Suspect]
     Indication: DEPRESSION
     Dosage: 60.0 MG
     Route: 048
     Dates: start: 20081119, end: 20120219

REACTIONS (8)
  - DISORIENTATION [None]
  - TINNITUS [None]
  - DRUG DOSE OMISSION [None]
  - PHOTOPHOBIA [None]
  - WITHDRAWAL SYNDROME [None]
  - PARAESTHESIA [None]
  - VERTIGO [None]
  - DIZZINESS [None]
